FAERS Safety Report 5643402-8 (Version None)
Quarter: 2008Q1

REPORT INFORMATION
  Report Type: 
  Country: None (occurrence: None)
  Receive Date: 20080228
  Receipt Date: 20080219
  Transmission Date: 20080703
  Serious: Yes (Hospitalization)
  Sender: FDA-Public Use
  Company Number: DE-ELI_LILLY_AND_COMPANY-DE200802004428

PATIENT
  Age: 70 Year
  Sex: Female

DRUGS (1)
  1. YENTREVE [Suspect]
     Indication: STRESS URINARY INCONTINENCE
     Dosage: 40 MG, 2/D
     Route: 048
     Dates: start: 20060401, end: 20071201

REACTIONS (1)
  - ATRIAL FIBRILLATION [None]
